FAERS Safety Report 7803595-0 (Version None)
Quarter: 2011Q4

REPORT INFORMATION
  Report Type: 
  Country: None (occurrence: None)
  Receive Date: 20111009
  Receipt Date: 20111005
  Transmission Date: 20120403
  Serious: Yes (Hospitalization)
  Sender: FDA-Public Use
  Company Number: US-BRISTOL-MYERS SQUIBB COMPANY-16135261

PATIENT
  Sex: Male

DRUGS (1)
  1. ABILIFY [Suspect]
     Dosage: DOSAGE REDUCED

REACTIONS (1)
  - NEUROLOGICAL SYMPTOM [None]
